FAERS Safety Report 9677523 (Version 1)
Quarter: 2013Q4

REPORT INFORMATION
  Report Type: Spontaneous
  Country: IT (occurrence: IT)
  Receive Date: 20131108
  Receipt Date: 20131108
  Transmission Date: 20140711
  Serious: Yes (Other)
  Sender: FDA-Public Use
  Company Number: PHHY2013IT126463

PATIENT
  Age: 54 Year
  Sex: Male

DRUGS (4)
  1. VOLTAREN [Suspect]
     Indication: INTERVERTEBRAL DISC PROTRUSION
     Dosage: 1 DF, QD
     Route: 030
     Dates: start: 20130710, end: 20130710
  2. GABAPENTIN [Concomitant]
     Dosage: UNK UKN, UNK
     Route: 048
  3. LANSOX [Concomitant]
     Dosage: UNK UKN, UNK
     Route: 048
  4. BENTELAN [Concomitant]
     Dosage: UNK UKN, UNK
     Route: 048

REACTIONS (2)
  - Loss of consciousness [Unknown]
  - Urinary incontinence [Unknown]
